FAERS Safety Report 12756168 (Version 2)
Quarter: 2016Q3

REPORT INFORMATION
  Report Type: Report from Study
  Country: US (occurrence: US)
  Receive Date: 20160916
  Receipt Date: 20160926
  Transmission Date: 20161109
  Serious: Yes (Hospitalization)
  Sender: FDA-Public Use
  Company Number: US-VERTEX PHARMACEUTICALS-2016-005303

PATIENT
  Age: 13 Year
  Sex: Female

DRUGS (10)
  1. HYPERTONIC SALINE SOLUTION [Concomitant]
     Active Substance: SODIUM CHLORIDE
  2. ALBUTEROL. [Concomitant]
     Active Substance: ALBUTEROL
  3. BACTRIM [Concomitant]
     Active Substance: SULFAMETHOXAZOLE\TRIMETHOPRIM
  4. ZITHROMAX [Concomitant]
     Active Substance: AZITHROMYCIN DIHYDRATE
  5. ORKAMBI [Suspect]
     Active Substance: IVACAFTOR\LUMACAFTOR
     Indication: CYSTIC FIBROSIS
     Dosage: 2 DF, BID
     Route: 048
     Dates: start: 20150930
  6. FLONASE [Concomitant]
     Active Substance: FLUTICASONE PROPIONATE
  7. LANTUS [Concomitant]
     Active Substance: INSULIN GLARGINE
  8. PULMOZYME [Concomitant]
     Active Substance: DORNASE ALFA
  9. MULTIVITAMIN [Concomitant]
     Active Substance: VITAMINS
  10. CREON [Concomitant]
     Active Substance: PANCRELIPASE AMYLASE\PANCRELIPASE LIPASE\PANCRELIPASE PROTEASE

REACTIONS (1)
  - Burkholderia cepacia complex infection [Recovered/Resolved]

NARRATIVE: CASE EVENT DATE: 20160725
